FAERS Safety Report 5471703-5 (Version None)
Quarter: 2007Q3

REPORT INFORMATION
  Report Type: 
  Country: None (occurrence: None)
  Receive Date: 20070928
  Receipt Date: 20070410
  Transmission Date: 20080115
  Serious: No
  Sender: FDA-Public Use
  Company Number: US-BRISTOL-MYERS SQUIBB COMPANY-13743836

PATIENT
  Sex: Female
  Weight: 88 kg

DRUGS (9)
  1. DEFINITY [Suspect]
     Indication: DYSPNOEA
     Route: 042
  2. DIOVAN [Concomitant]
  3. ASPIRIN [Concomitant]
  4. LIPITOR [Concomitant]
  5. VITAMIN CAP [Concomitant]
  6. OMEGA 3 FISH OIL [Concomitant]
  7. GLUCOPHAGE [Concomitant]
  8. ZIAC [Concomitant]
  9. GLIPIZIDE [Concomitant]

REACTIONS (2)
  - BONE PAIN [None]
  - PAIN [None]
